FAERS Safety Report 18273173 (Version 2)
Quarter: 2021Q3

REPORT INFORMATION
  Report Type: Spontaneous
  Country: CA (occurrence: CA)
  Receive Date: 20200916
  Receipt Date: 20210831
  Transmission Date: 20211014
  Serious: Yes (Other)
  Sender: FDA-Public Use
  Company Number: CA-PFIZER INC-2020354672

PATIENT
  Age: 63 Year
  Sex: Female

DRUGS (1)
  1. IBRANCE [Suspect]
     Active Substance: PALBOCICLIB
     Indication: BREAST CANCER METASTATIC
     Dosage: 75 MG, CYCLIC (DAILY 21 OUT OF 28 DAYS PER CYCLE)
     Route: 048
     Dates: start: 20191010

REACTIONS (8)
  - Neoplasm progression [Unknown]
  - Aortic arteriosclerosis [Unknown]
  - Hepatic cyst [Unknown]
  - Uterine disorder [Unknown]
  - Hepatomegaly [Unknown]
  - Hepatic steatosis [Unknown]
  - Faecaloma [Unknown]
  - Seroma [Unknown]

NARRATIVE: CASE EVENT DATE: 20200128
